FAERS Safety Report 5760883-X (Version None)
Quarter: 2008Q2

REPORT INFORMATION
  Report Type: 
  Country: None (occurrence: None)
  Receive Date: 20080606
  Receipt Date: 20070508
  Transmission Date: 20081010
  Serious: No
  Sender: FDA-Public Use
  Company Number: US-ASTRAZENECA-2007UW11015

PATIENT
  Age: 52 Year
  Sex: Female
  Weight: 83.9 kg

DRUGS (8)
  1. PRILOSEC [Suspect]
     Indication: GASTROOESOPHAGEAL REFLUX DISEASE
     Route: 048
     Dates: start: 20070427
  2. PRILOSEC [Suspect]
     Indication: EROSIVE OESOPHAGITIS
     Route: 048
     Dates: start: 20070427
  3. LEVOXYL [Concomitant]
  4. XANAX [Concomitant]
  5. WELLBUTRIN XL [Concomitant]
  6. LAMICTAL [Concomitant]
  7. LUNESTA [Concomitant]
  8. NEXIUM [Concomitant]
     Route: 048

REACTIONS (10)
  - ABDOMINAL PAIN UPPER [None]
  - CHEST PAIN [None]
  - CONSTIPATION [None]
  - DIZZINESS [None]
  - DYSPHAGIA [None]
  - FATIGUE [None]
  - GASTROINTESTINAL EROSION [None]
  - NAUSEA [None]
  - NECK PAIN [None]
  - PHARYNGOLARYNGEAL PAIN [None]
